FAERS Safety Report 25141503 (Version 1)
Quarter: 2025Q1

REPORT INFORMATION
  Report Type: Spontaneous
  Country: US (occurrence: US)
  Receive Date: 20250331
  Receipt Date: 20250331
  Transmission Date: 20250408
  Serious: No
  Sender: SANOFI AVENTIS
  Company Number: US-SANOFI-02464318

PATIENT
  Age: 67 Year
  Sex: Female

DRUGS (4)
  1. LANTUS SOLOSTAR [Suspect]
     Active Substance: INSULIN GLARGINE
     Indication: Type 2 diabetes mellitus
     Dosage: 36 IU QD
     Route: 065
     Dates: start: 2025
  2. METFORMIN [Concomitant]
     Active Substance: METFORMIN HYDROCHLORIDE
  3. MOUNJARO [Concomitant]
     Active Substance: TIRZEPATIDE
  4. CORTISONE [Concomitant]
     Active Substance: CORTISONE

REACTIONS (1)
  - Blood glucose increased [Recovering/Resolving]
